FAERS Safety Report 14466499 (Version 1)
Quarter: 2018Q1

REPORT INFORMATION
  Report Type: Spontaneous
  Country: US (occurrence: US)
  Receive Date: 20180131
  Receipt Date: 20180131
  Transmission Date: 20180509
  Serious: Yes (Hospitalization, Other)
  Sender: FDA-Public Use
  Company Number: US-APOTEX-2018AP006136

PATIENT
  Age: 48 Year
  Sex: Female

DRUGS (1)
  1. MIDODRINE [Suspect]
     Active Substance: MIDODRINE
     Indication: PRODUCT USED FOR UNKNOWN INDICATION
     Dosage: 30-40 TABLETS
     Route: 065

REACTIONS (11)
  - Toxicity to various agents [Unknown]
  - Electrocardiogram ST segment depression [Unknown]
  - Metabolic acidosis [Unknown]
  - Blood lactic acid increased [Unknown]
  - Subarachnoid haemorrhage [Unknown]
  - Intentional overdose [Unknown]
  - Bradycardia [Unknown]
  - Seizure [Unknown]
  - Hypertension [Unknown]
  - Troponin increased [Unknown]
  - Posterior reversible encephalopathy syndrome [Recovering/Resolving]
